FAERS Safety Report 16285909 (Version 1)
Quarter: 2019Q2

REPORT INFORMATION
  Report Type: Spontaneous
  Country: US (occurrence: US)
  Receive Date: 20190508
  Receipt Date: 20190508
  Transmission Date: 20190711
  Serious: No
  Sender: FDA-Public Use
  Company Number: US-MYLANLABS-2019M1041789

PATIENT
  Sex: Female

DRUGS (2)
  1. METOPROLOL. [Concomitant]
     Active Substance: METOPROLOL
  2. LEVOTHYROXINE. [Suspect]
     Active Substance: LEVOTHYROXINE
     Indication: HYPOTHYROIDISM
     Dosage: UNK
     Route: 048

REACTIONS (10)
  - Rash [Unknown]
  - Dyspnoea [Unknown]
  - Decreased appetite [Unknown]
  - Arthralgia [Unknown]
  - Myalgia [Unknown]
  - Weight increased [Unknown]
  - Dizziness [Unknown]
  - Constipation [Unknown]
  - Irritability [Unknown]
  - Headache [Unknown]
